FAERS Safety Report 13559960 (Version 3)
Quarter: 2023Q1

REPORT INFORMATION
  Report Type: Report from Study
  Country: US (occurrence: None)
  Receive Date: 20170518
  Receipt Date: 20230118
  Transmission Date: 20230417
  Serious: Yes (Hospitalization)
  Sender: FDA-Public Use
  Company Number: US-ROCHE-1934788

PATIENT
  Sex: Male

DRUGS (21)
  1. OBINUTUZUMAB [Suspect]
     Active Substance: OBINUTUZUMAB
     Indication: Non-Hodgkin^s lymphoma unspecified histology indolent
     Dosage: SPRAY
     Route: 045
     Dates: start: 20170508
  2. LENALIDOMIDE [Suspect]
     Active Substance: LENALIDOMIDE
     Indication: Non-Hodgkin^s lymphoma unspecified histology indolent
     Dosage: 4 CAPSULES DAILY FOR 21 DAYS BEGINNING ON DAY 2.
     Route: 048
  3. TYLENOL [Concomitant]
     Active Substance: ACETAMINOPHEN
     Dosage: LAST DOSE: 09/MAY/2017
     Route: 048
  4. ZOVIRAX [Concomitant]
     Active Substance: ACYCLOVIR
     Dosage: LAST DOSE: 10/MAY/2017
     Route: 048
  5. VITAMIN C [Concomitant]
     Active Substance: ASCORBIC ACID
     Dosage: LAST DOSE: 10/MAY/2017
     Route: 048
  6. ASPIRIN [Concomitant]
     Active Substance: ASPIRIN
     Dosage: LAST DOSE: 10/MAY/2017
     Route: 048
  7. VITAMIN B COMPLEX [Concomitant]
     Active Substance: CYANOCOBALAMIN\DEXPANTHENOL\NIACINAMIDE\PYRIDOXINE HYDROCHLORIDE\RIBOFLAVIN 5^-PHOSPHATE SODIUM\THIA
     Dosage: LAST DOSE: 10/MAY/2017
     Route: 048
  8. KEFLEX [Concomitant]
     Active Substance: CEPHALEXIN
     Dosage: LAST DOSE: 10/MAY/2017
     Route: 048
  9. ZYRTEC [Concomitant]
     Active Substance: CETIRIZINE HYDROCHLORIDE
     Indication: Hypersensitivity
     Dosage: LAST DOSE: 10/MAY/2017
     Route: 048
  10. OMEGA-3 FATTY ACIDS [Concomitant]
     Active Substance: OMEGA-3 FATTY ACIDS
     Dosage: LAST DOSE: 10/MAY/2017
     Route: 048
  11. GINGER ROOT EXTRACT [Concomitant]
     Dosage: LAST DOSE: 10/MAY/2017
     Route: 048
  12. GLUCOSAMINE HYDROCHLORIDE [Concomitant]
     Active Substance: GLUCOSAMINE HYDROCHLORIDE
     Dosage: LAST DOSE: 10/MAY/2017
     Route: 048
  13. TURMERIC [Concomitant]
     Active Substance: TURMERIC
     Dosage: LAST DOSE: 10/MAY/2017
     Route: 048
  14. VITAMIN E [Concomitant]
     Active Substance: .ALPHA.-TOCOPHEROL
     Dosage: 400 UNITS, LAST DOSE: 10/MAY/2017
     Route: 048
  15. ALPHAGAN P [Concomitant]
     Active Substance: BRIMONIDINE TARTRATE
     Dosage: 1 DROP TO BOTH EYES TWICE DAILY
     Route: 047
  16. CALCIUM CITRATE [Concomitant]
     Active Substance: CALCIUM CITRATE
     Route: 048
  17. REFRESH CLASSIC [Concomitant]
     Active Substance: POLYVINYL ALCOHOL\POVIDONE
     Dosage: 1 DROP TO BOTH EYES
     Route: 047
  18. ATROVENT [Concomitant]
     Active Substance: IPRATROPIUM BROMIDE
     Dosage: 2 SPRAYS BY EACH
     Route: 029
  19. PROTONIX [Concomitant]
     Active Substance: PANTOPRAZOLE SODIUM
     Indication: Gastrooesophageal reflux disease
  20. LASIX [Concomitant]
     Active Substance: FUROSEMIDE
     Indication: Oedema
  21. VITAMIN D3 [Concomitant]
     Active Substance: CHOLECALCIFEROL
     Dosage: 1000 UNITS, LAST DOSE: 10/MAY/2017
     Route: 048

REACTIONS (2)
  - Pyrexia [Recovered/Resolved]
  - Sinus tachycardia [Recovered/Resolved]

NARRATIVE: CASE EVENT DATE: 20170510
